FAERS Safety Report 11504779 (Version 1)
Quarter: 2015Q3

REPORT INFORMATION
  Report Type: Spontaneous
  Country: US (occurrence: US)
  Receive Date: 20150915
  Receipt Date: 20150915
  Transmission Date: 20151125
  Serious: No
  Sender: FDA-Public Use
  Company Number: US-ROCHE-789905

PATIENT
  Sex: Male

DRUGS (3)
  1. INCIVO [Concomitant]
     Active Substance: TELAPREVIR
     Dosage: DRUG REPORTED AS : INCIVEK
     Route: 065
  2. RIBAVIRIN. [Suspect]
     Active Substance: RIBAVIRIN
     Indication: HEPATITIS C
     Route: 065
  3. PEGASYS [Suspect]
     Active Substance: PEGINTERFERON ALFA-2A
     Indication: HEPATITIS C
     Route: 065

REACTIONS (6)
  - Rash generalised [Unknown]
  - Weight decreased [Unknown]
  - Rash erythematous [Unknown]
  - Platelet count decreased [Unknown]
  - Henoch-Schonlein purpura [Unknown]
  - Injection site erythema [Unknown]
